FAERS Safety Report 5015035-8 (Version None)
Quarter: 2006Q2

REPORT INFORMATION
  Report Type: 
  Country: None (occurrence: None)
  Receive Date: 20060425
  Receipt Date: 20051110
  Transmission Date: 20061013
  Serious: Yes (Disabling)
  Sender: FDA-Public Use
  Company Number: WAES 0511USA01863

PATIENT
  Age: 7 Year
  Sex: Male
  Weight: 34.0198 kg

DRUGS (4)
  1. SINGULAIR [Suspect]
     Indication: ASTHMA
     Dosage: 5 MG/1X/PO
     Route: 048
     Dates: start: 20051107, end: 20051107
  2. SINGULAIR [Suspect]
     Indication: COUGH
     Dosage: 5 MG/1X/PO
     Route: 048
     Dates: start: 20051107, end: 20051107
  3. FLUZONE [Concomitant]
  4. PULMICORT [Concomitant]

REACTIONS (2)
  - HYPOAESTHESIA [None]
  - PARAESTHESIA [None]
